FAERS Safety Report 21780615 (Version 1)
Quarter: 2022Q4

REPORT INFORMATION
  Report Type: Spontaneous
  Country: US (occurrence: US)
  Receive Date: 20221227
  Receipt Date: 20221227
  Transmission Date: 20230112
  Serious: Yes (Hospitalization, Other)
  Sender: FDA-Public Use
  Company Number: US-drreddys-SPO/USA/22/0158595

PATIENT
  Age: 77 Year
  Sex: Male

DRUGS (2)
  1. AMIODARONE HYDROCHLORIDE [Suspect]
     Active Substance: AMIODARONE HYDROCHLORIDE
     Indication: Cardiac arrest
     Dosage: 200-ML SOLUTION (1.8 MG/ML) IN 5 PERCENT DEXTROSE
     Route: 042
  2. DEXTROSE 5 percent [Concomitant]
     Indication: Cardiac arrest
     Route: 042

REACTIONS (5)
  - Eschar [Recovering/Resolving]
  - Sensory loss [Recovering/Resolving]
  - Arm amputation [Recovering/Resolving]
  - Skin necrosis [Recovering/Resolving]
  - Infusion site necrosis [Recovering/Resolving]
